FAERS Safety Report 7953591-8 (Version None)
Quarter: 2011Q4

REPORT INFORMATION
  Report Type: 
  Country: None (occurrence: None)
  Receive Date: 20111202
  Receipt Date: 20111129
  Transmission Date: 20120403
  Serious: Yes (Death)
  Sender: FDA-Public Use
  Company Number: PHHY2011GB104293

PATIENT
  Age: 100 Year
  Sex: Female
  Weight: 49 kg

DRUGS (10)
  1. CODEINE [Concomitant]
  2. FUROSEMIDE [Concomitant]
  3. ACETAMINOPHEN [Concomitant]
  4. PROCHLORPERAZINE [Concomitant]
  5. SENNA [Concomitant]
  6. LACTULOSE [Concomitant]
  7. LAXIDO [Concomitant]
  8. ASPIRIN [Concomitant]
  9. AMOXICILLIN AND CLAVULANATE POTASSIUM [Suspect]
     Indication: URINARY TRACT INFECTION
     Dosage: UNK
     Route: 048
  10. VITAMIN B-12 [Suspect]
     Indication: ANAEMIA
     Dosage: UNK
     Route: 030
     Dates: start: 20111118

REACTIONS (4)
  - DEATH [None]
  - MALAISE [None]
  - OEDEMA PERIPHERAL [None]
  - CONFUSIONAL STATE [None]
